FAERS Safety Report 4663438-3 (Version None)
Quarter: 2005Q2

REPORT INFORMATION
  Report Type: 
  Country: None (occurrence: None)
  Receive Date: 20050513
  Receipt Date: 20050504
  Transmission Date: 20051028
  Serious: Yes (Death, Hospitalization, Other)
  Sender: FDA-Public Use
  Company Number: 2005070835

PATIENT
  Age: 75 Year
  Sex: Female

DRUGS (14)
  1. ATORVASTATIN CALCIUM [Suspect]
     Indication: HYPERCHOLESTEROLAEMIA
     Dates: start: 19990101
  2. BUDESONIDE [Suspect]
     Indication: ASTHMA
     Dates: start: 20020301
  3. DILTIAZEM [Suspect]
     Indication: HYPERTENSION
     Dates: end: 20020301
  4. GLYCERYL TRINITRATE PATCH (GLYCERYL TRINITRATE) [Suspect]
     Indication: PAIN
     Dates: start: 20020301
  5. LISINOPRIL [Suspect]
     Indication: HYPERTENSION
     Dates: start: 20020301
  6. QUININE HYDROCHLORIDE (QUININE HYDROCHLORIDE) [Suspect]
     Indication: MUSCLE SPASMS
  7. CODEINE PHOSPHATE AND ACETAMINOPHEN [Concomitant]
  8. ASPIRIN [Concomitant]
  9. LANSOPRAZOLE [Concomitant]
  10. LEFLUNOMIDE [Concomitant]
  11. PROPOFOL [Concomitant]
  12. MIDAZOLAM HCL [Concomitant]
  13. FENTANYL [Concomitant]
  14. PANCURONIUM [Concomitant]

REACTIONS (21)
  - ASTHMA [None]
  - CORONARY ARTERY SURGERY [None]
  - DUODENAL ULCER [None]
  - GASTRIC ULCER [None]
  - GASTROINTESTINAL HAEMORRHAGE [None]
  - GENERAL PHYSICAL HEALTH DETERIORATION [None]
  - HAEMATEMESIS [None]
  - HAEMODIALYSIS [None]
  - HEPATIC CONGESTION [None]
  - HEPATIC INFARCTION [None]
  - HEPATOCELLULAR DAMAGE [None]
  - HEPATORENAL SYNDROME [None]
  - HYPERCHOLESTEROLAEMIA [None]
  - HYPERTENSION [None]
  - HYPOVOLAEMIA [None]
  - LABILE BLOOD PRESSURE [None]
  - MUSCLE SPASMS [None]
  - PAIN [None]
  - POST PROCEDURAL HAEMORRHAGE [None]
  - RENAL FAILURE [None]
  - RHEUMATOID ARTHRITIS [None]
